FAERS Safety Report 13135891 (Version 1)
Quarter: 2017Q1

REPORT INFORMATION
  Report Type: Spontaneous
  Country: US (occurrence: US)
  Receive Date: 20170120
  Receipt Date: 20170120
  Transmission Date: 20170428
  Serious: Yes (Other)
  Sender: FDA-Public Use
  Company Number: US-RELYPSA-RLY2017000315

PATIENT
  Age: 40 Year
  Sex: Male

DRUGS (10)
  1. LISINOPRIL. [Concomitant]
     Active Substance: LISINOPRIL
  2. SOMA [Concomitant]
     Active Substance: CARISOPRODOL
  3. VELTASSA [Suspect]
     Active Substance: PATIROMER
     Indication: HYPERKALAEMIA
     Dosage: 8.4 G, BID
     Route: 048
     Dates: start: 20160831
  4. RENVELA [Concomitant]
     Active Substance: SEVELAMER CARBONATE
  5. FLOMAX [Concomitant]
     Active Substance: TAMSULOSIN HYDROCHLORIDE
  6. LANTUS [Concomitant]
     Active Substance: INSULIN GLARGINE
  7. NORVASC [Concomitant]
     Active Substance: AMLODIPINE BESYLATE
  8. ATIVAN [Concomitant]
     Active Substance: LORAZEPAM
  9. LASIX [Concomitant]
     Active Substance: FUROSEMIDE
  10. COREG [Concomitant]
     Active Substance: CARVEDILOL

REACTIONS (1)
  - Dialysis [Unknown]

NARRATIVE: CASE EVENT DATE: 201701
